FAERS Safety Report 25105499 (Version 2)
Quarter: 2025Q1

REPORT INFORMATION
  Report Type: Spontaneous
  Country: US (occurrence: US)
  Receive Date: 20250321
  Receipt Date: 20250325
  Transmission Date: 20250408
  Serious: No
  Sender: Haleon PLC
  Company Number: US-HALEON-2233567

PATIENT
  Sex: Male
  Weight: 77.79 kg

DRUGS (1)
  1. SENSODYNE PRONAMEL [Suspect]
     Active Substance: POTASSIUM NITRATE\SODIUM FLUORIDE
     Indication: Product used for unknown indication
     Dosage: 2 TIMES A DAY, A PEA-SIZE PORTION ON TOOTHBRUSH
     Dates: start: 20250203, end: 20250217

REACTIONS (4)
  - Gingival bleeding [Recovered/Resolved]
  - Gingival swelling [Recovered/Resolved]
  - Irritability [Recovered/Resolved]
  - Gingival pain [Recovered/Resolved]
